FAERS Safety Report 4830067-8 (Version None)
Quarter: 2005Q4

REPORT INFORMATION
  Report Type: 
  Country: None (occurrence: None)
  Receive Date: 20051117
  Receipt Date: 20051107
  Transmission Date: 20060501
  Serious: Yes (Other)
  Sender: FDA-Public Use
  Company Number: US-JNJFOC-20050903503

PATIENT
  Sex: Female
  Weight: 130.64 kg

DRUGS (23)
  1. REMICADE [Suspect]
     Indication: CROHN'S DISEASE
     Route: 042
  2. METHOTREXATE [Concomitant]
     Indication: CROHN'S DISEASE
  3. PENTASA [Concomitant]
     Indication: CROHN'S DISEASE
  4. ENDOCORT EC [Concomitant]
  5. ENDOCORT EC [Concomitant]
  6. HYCOSAMINE [Concomitant]
  7. XALATAN [Concomitant]
  8. WELLBUTRIN [Concomitant]
     Indication: DEPRESSION
  9. AVANDIA [Concomitant]
  10. ZYRTEC [Concomitant]
  11. METOPROLOL [Concomitant]
  12. ZOCOR [Concomitant]
  13. HYDROCHLOROTHIAZIDE [Concomitant]
  14. TRAZODONE HCL [Concomitant]
  15. LANTUS [Concomitant]
  16. ALBUTEROL [Concomitant]
  17. ADVAIR DISKUS 100/50 [Concomitant]
  18. ADVAIR DISKUS 100/50 [Concomitant]
  19. SYNTHROID [Concomitant]
  20. LISINOPRIL [Concomitant]
  21. ACIPHEX [Concomitant]
  22. METFORMIN HCL [Concomitant]
  23. BETOPTIC [Concomitant]
     Route: 047

REACTIONS (1)
  - ANKLE FRACTURE [None]
